FAERS Safety Report 9216139 (Version 1)
Quarter: 2013Q2

REPORT INFORMATION
  Report Type: Spontaneous
  Country: GB (occurrence: GB)
  Receive Date: 20130408
  Receipt Date: 20130408
  Transmission Date: 20140414
  Serious: Yes (Death, Other)
  Sender: FDA-Public Use
  Company Number: GB-ACCORD-017088

PATIENT
  Age: 58 Year
  Sex: Male
  Weight: 75 kg

DRUGS (3)
  1. ACITRETIN [Concomitant]
  2. HUMIRA [Suspect]
     Indication: IRIDOCYCLITIS
     Dosage: 80MG LOADING, THEN 40 MG FORTNIGHTLY
     Route: 058
     Dates: end: 20120331
  3. MYCOPHENOLATE MOFETIL [Suspect]
     Indication: IRIDOCYCLITIS
     Route: 048
     Dates: start: 20110301, end: 20120331

REACTIONS (7)
  - Myelofibrosis [Fatal]
  - Squamous cell carcinoma of skin [Not Recovered/Not Resolved]
  - Anaemia [Not Recovered/Not Resolved]
  - Splenomegaly [Not Recovered/Not Resolved]
  - Pancytopenia [Not Recovered/Not Resolved]
  - Metastases to lymph nodes [Not Recovered/Not Resolved]
  - Off label use [Unknown]
